FAERS Safety Report 4681098-2 (Version None)
Quarter: 2005Q2

REPORT INFORMATION
  Report Type: 
  Country: None (occurrence: None)
  Receive Date: 20050603
  Receipt Date: 20050520
  Transmission Date: 20051028
  Serious: Yes (Disabling)
  Sender: FDA-Public Use
  Company Number: JP-MERCK-0505USA03381

PATIENT
  Age: 69 Year
  Sex: Male
  Weight: 51 kg

DRUGS (8)
  1. PEPCID [Suspect]
     Route: 042
     Dates: start: 20050420, end: 20050510
  2. MIDAZOLAM [Suspect]
     Route: 042
     Dates: start: 20050417, end: 20050502
  3. PLETAL [Concomitant]
     Route: 048
     Dates: start: 20050416
  4. NITRODERM [Concomitant]
     Route: 065
  5. MODACIN [Concomitant]
     Route: 042
     Dates: start: 20050417, end: 20050505
  6. INOVAN [Concomitant]
     Route: 042
     Dates: start: 20050418
  7. NICARDIPINE HCL [Concomitant]
     Route: 042
     Dates: start: 20050502
  8. NEOLAMIN [Concomitant]
     Route: 042
     Dates: start: 20050501

REACTIONS (1)
  - DEPRESSED LEVEL OF CONSCIOUSNESS [None]
